FAERS Safety Report 22227463 (Version 1)
Quarter: 2023Q2

REPORT INFORMATION
  Report Type: Spontaneous
  Country: US (occurrence: US)
  Receive Date: 20230419
  Receipt Date: 20230419
  Transmission Date: 20230721
  Serious: Yes (Hospitalization, Other)
  Sender: FDA-Public Use
  Company Number: US-MLMSERVICE-20230403-4202737-2

PATIENT
  Age: 61 Year
  Sex: Female

DRUGS (1)
  1. SERTRALINE [Suspect]
     Active Substance: SERTRALINE HYDROCHLORIDE
     Indication: Product used for unknown indication

REACTIONS (5)
  - Rhabdomyolysis [Recovered/Resolved]
  - Syncope [Recovered/Resolved]
  - Trismus [Recovering/Resolving]
  - Metabolic acidosis [Recovering/Resolving]
  - Mitochondrial cytopathy [Recovering/Resolving]
